FAERS Safety Report 9146859 (Version 5)
Quarter: 2014Q2

REPORT INFORMATION
  Report Type: Spontaneous
  Country: US (occurrence: US)
  Receive Date: 20130307
  Receipt Date: 20140506
  Transmission Date: 20141212
  Serious: Yes (Other)
  Sender: FDA-Public Use
  Company Number: US-PFIZER INC-2013078265

PATIENT
  Age: 58 Year
  Sex: Male
  Weight: 95.24 kg

DRUGS (9)
  1. LYRICA [Suspect]
     Indication: NEURALGIA
     Dosage: 100 MG, 8X/DAY
     Route: 048
  2. LYRICA [Suspect]
     Indication: NECK PAIN
  3. LYRICA [Suspect]
     Indication: ARTHRALGIA
  4. LYRICA [Suspect]
     Indication: PAIN
  5. DURAGESIC [Concomitant]
     Indication: BREAKTHROUGH PAIN
     Dosage: UNK
  6. OXYCODONE [Concomitant]
     Indication: BREAKTHROUGH PAIN
     Dosage: UNK
  7. ZANAFLEX [Concomitant]
     Dosage: UNK
  8. CLOMID [Concomitant]
     Dosage: UNK
  9. VITAMIN C [Concomitant]
     Dosage: UNK

REACTIONS (6)
  - Impaired work ability [Unknown]
  - Spinal disorder [Unknown]
  - Fibromyalgia [Unknown]
  - Drug withdrawal syndrome [Unknown]
  - Tremor [Unknown]
  - Vomiting [Unknown]
